FAERS Safety Report 12085010 (Version 9)
Quarter: 2019Q3

REPORT INFORMATION
  Report Type: Report from Study
  Country: US (occurrence: US)
  Receive Date: 20160217
  Receipt Date: 20190822
  Transmission Date: 20191004
  Serious: Yes (Other)
  Sender: FDA-Public Use
  Company Number: PHHY2015US123564

PATIENT
  Age: 49 Year
  Sex: Female

DRUGS (1)
  1. GILENYA [Suspect]
     Active Substance: FINGOLIMOD HYDROCHLORIDE
     Indication: MULTIPLE SCLEROSIS
     Dosage: UNK, QD
     Route: 048

REACTIONS (20)
  - Blood alkaline phosphatase decreased [Unknown]
  - Paraesthesia [Recovered/Resolved]
  - Dizziness postural [Recovered/Resolved]
  - Lymphocyte count decreased [Unknown]
  - High density lipoprotein decreased [Unknown]
  - Blood alkaline phosphatase increased [Recovered/Resolved]
  - Oedema peripheral [Recovered/Resolved]
  - Hyperacusis [Unknown]
  - Anxiety [Unknown]
  - Fatigue [Unknown]
  - Arthropod bite [Recovered/Resolved]
  - Oropharyngeal pain [Recovered/Resolved]
  - Nausea [Recovered/Resolved]
  - Vomiting [Recovered/Resolved]
  - Deafness bilateral [Unknown]
  - Alanine aminotransferase increased [Unknown]
  - Asthenia [Unknown]
  - Paraesthesia [Unknown]
  - Erythema [Recovered/Resolved]
  - Photophobia [Unknown]

NARRATIVE: CASE EVENT DATE: 20150101
